FAERS Safety Report 12892157 (Version 1)
Quarter: 2016Q4

REPORT INFORMATION
  Report Type: Spontaneous
  Country: US (occurrence: US)
  Receive Date: 20161028
  Receipt Date: 20161028
  Transmission Date: 20170207
  Serious: No
  Sender: FDA-Public Use
  Company Number: US-JNJFOC-20161022070

PATIENT
  Sex: Female

DRUGS (2)
  1. CHILDRENS ZYRTEC ALLERGY [Suspect]
     Active Substance: CETIRIZINE HYDROCHLORIDE
     Indication: SINUS CONGESTION
     Dosage: 1 TABLET, ONCE
     Route: 048
     Dates: start: 20161023
  2. CHILDRENS ZYRTEC ALLERGY [Suspect]
     Active Substance: CETIRIZINE HYDROCHLORIDE
     Indication: SNEEZING
     Dosage: 1 TABLET, ONCE
     Route: 048
     Dates: start: 20161023

REACTIONS (4)
  - Drug ineffective for unapproved indication [Unknown]
  - Insomnia [Unknown]
  - Product use issue [Unknown]
  - Drug ineffective [Unknown]

NARRATIVE: CASE EVENT DATE: 20161023
